FAERS Safety Report 7651886-9 (Version None)
Quarter: 2011Q3

REPORT INFORMATION
  Report Type: 
  Country: None (occurrence: None)
  Receive Date: 20110803
  Receipt Date: 20110722
  Transmission Date: 20111222
  Serious: No
  Sender: FDA-Public Use
  Company Number: US-BIOGENIDEC-2011BI000939

PATIENT
  Sex: Female

DRUGS (8)
  1. TYSABRI [Suspect]
     Indication: MULTIPLE SCLEROSIS
     Route: 042
     Dates: start: 20110103, end: 20110501
  2. FENTANYL-100 [Concomitant]
     Indication: ARTHRALGIA
  3. LIDODERM [Concomitant]
     Indication: BACK DISORDER
  4. CLONIDINE [Concomitant]
     Indication: INSOMNIA
  5. IV FLUIDS (NOS) [Concomitant]
     Indication: PREMEDICATION
  6. LIDODERM [Concomitant]
     Indication: ARTHRALGIA
  7. FENTANYL-100 [Concomitant]
     Indication: BACK DISORDER
  8. DIAZEPAM [Concomitant]
     Indication: MUSCLE SPASMS

REACTIONS (20)
  - MUSCULOSKELETAL DISORDER [None]
  - OEDEMA PERIPHERAL [None]
  - HEAD TITUBATION [None]
  - MUSCLE SPASMS [None]
  - BACK DISORDER [None]
  - INFUSION SITE HAEMORRHAGE [None]
  - JOINT SWELLING [None]
  - INSOMNIA [None]
  - BURNING SENSATION [None]
  - PAIN [None]
  - ARTHRALGIA [None]
  - FATIGUE [None]
  - NAUSEA [None]
  - MOBILITY DECREASED [None]
  - NERVOUS SYSTEM DISORDER [None]
  - HEADACHE [None]
  - ASTHENIA [None]
  - CONFUSIONAL STATE [None]
  - PRURITUS [None]
  - INFUSION SITE HAEMATOMA [None]
